FAERS Safety Report 24382516 (Version 1)
Quarter: 2024Q4

REPORT INFORMATION
  Report Type: Spontaneous
  Country: US (occurrence: US)
  Receive Date: 20241001
  Receipt Date: 20241001
  Transmission Date: 20250115
  Serious: Yes (Other)
  Sender: SPARK THERAPEUTICS
  Company Number: US-SPARK THERAPEUTICS INC.-US-SPK-23-00098

PATIENT
  Age: 28 Year
  Sex: Female

DRUGS (4)
  1. LUXTURNA [Suspect]
     Active Substance: VORETIGENE NEPARVOVEC-RZYL
     Indication: Leber^s congenital amaurosis
     Dosage: 0.3 MILLILITER, SINGLE, SUBRETINAL, LEFT EYE
     Dates: start: 20230710, end: 20230710
  2. LUXTURNA [Suspect]
     Active Substance: VORETIGENE NEPARVOVEC-RZYL
     Dosage: 0.3 MILLILITER, SINGLE, SUBRETINAL, RIGHT EYE
     Dates: start: 20230724, end: 20230724
  3. LUXTURNA [Suspect]
     Active Substance: VORETIGENE NEPARVOVEC-RZYL
     Indication: Leber^s congenital amaurosis
     Dosage: UNK, LEFT EYE
     Dates: start: 20230710, end: 20230710
  4. LUXTURNA [Suspect]
     Active Substance: VORETIGENE NEPARVOVEC-RZYL
     Dosage: UNK, RIGHT EYE
     Dates: start: 20230724, end: 20230724

REACTIONS (1)
  - Retinal detachment [Recovering/Resolving]

NARRATIVE: CASE EVENT DATE: 20230816
